FAERS Safety Report 4775476-0 (Version None)
Quarter: 2005Q3

REPORT INFORMATION
  Report Type: 
  Country: None (occurrence: None)
  Receive Date: 20050920
  Receipt Date: 20050907
  Transmission Date: 20060218
  Serious: Yes (Other)
  Sender: FDA-Public Use
  Company Number: HQWYE493015SEP05

PATIENT

DRUGS (1)
  1. RAPAMUNE [Suspect]
     Indication: PROPHYLAXIS AGAINST TRANSPLANT REJECTION
     Dosage: 3 MG/M^2 1X PER 1 DAY ADJUSTED TO MAINTAIN A TROUGH LEVEL OF 5-15 NG/ML, SINGLE DAILY DOSE

REACTIONS (1)
  - NEPHROTIC SYNDROME [None]
